FAERS Safety Report 15280884 (Version 1)
Quarter: 2018Q3

REPORT INFORMATION
  Report Type: Spontaneous
  Country: US (occurrence: US)
  Receive Date: 20180815
  Receipt Date: 20180815
  Transmission Date: 20181010
  Serious: No
  Sender: FDA-Public Use
  Company Number: US-SYNERGY PHARMACEUTICALS INC-US-2018SNG000109

PATIENT

DRUGS (1)
  1. TRULANCE [Suspect]
     Active Substance: PLECANATIDE
     Indication: CONSTIPATION
     Dosage: 3 MG, QD
     Route: 048
     Dates: start: 20180417

REACTIONS (5)
  - Abdominal tenderness [Not Recovered/Not Resolved]
  - Abdominal distension [Not Recovered/Not Resolved]
  - Drug dose omission [Unknown]
  - Abdominal discomfort [Not Recovered/Not Resolved]
  - Gastrointestinal sounds abnormal [Not Recovered/Not Resolved]
